FAERS Safety Report 4944136-5 (Version None)
Quarter: 2006Q1

REPORT INFORMATION
  Report Type: 
  Country: None (occurrence: None)
  Receive Date: 20060310
  Receipt Date: 20060227
  Transmission Date: 20060701
  Serious: Yes (Death, Life-Threatening, Hospitalization)
  Sender: FDA-Public Use
  Company Number: 13534

PATIENT
  Age: 79 Year
  Sex: Male
  Weight: 81.7382 kg

DRUGS (7)
  1. CYTARABINE [Suspect]
     Indication: MYELODYSPLASTIC SYNDROME
     Dosage: 10 MG BID SC
     Route: 058
     Dates: start: 20060106, end: 20060119
  2. ARSENIC TRIOXIDE [Suspect]
     Indication: MYELODYSPLASTIC SYNDROME
     Dosage: 20.4 MG QD IV
     Route: 042
     Dates: start: 20060106, end: 20060117
  3. PREVACID [Concomitant]
  4. AMIKACIN [Concomitant]
  5. IMIPENEM [Concomitant]
  6. VANCOLED [Concomitant]
  7. PROCRIT [Concomitant]

REACTIONS (2)
  - FLUID OVERLOAD [None]
  - MULTI-ORGAN FAILURE [None]
